FAERS Safety Report 7719416-0 (Version None)
Quarter: 2011Q3

REPORT INFORMATION
  Report Type: 
  Country: None (occurrence: None)
  Receive Date: 20110830
  Receipt Date: 20110818
  Transmission Date: 20111222
  Serious: Yes (Hospitalization, Other)
  Sender: FDA-Public Use
  Company Number: PHHY2011FR36484

PATIENT
  Sex: Female
  Weight: 66 kg

DRUGS (7)
  1. RAMIPRIL [Concomitant]
     Indication: HYPERTENSION
     Dosage: 5/12.5 MG, UNK
     Route: 048
     Dates: start: 20090401
  2. PLAVIX [Concomitant]
     Dosage: 75 MG, UNK
  3. LEVOTHYROXINE SODIUM [Concomitant]
     Indication: HYPOTHYROIDISM
     Dosage: 100 MG, UNK
     Route: 048
     Dates: start: 19810101
  4. GLEEVEC [Suspect]
     Indication: CHRONIC MYELOID LEUKAEMIA
     Dosage: 600 MG, QD
     Route: 048
     Dates: start: 20101113
  5. GLEEVEC [Suspect]
     Dosage: 400 MG, QD
     Route: 048
  6. ZOCOR [Concomitant]
     Indication: HYPERCHOLESTEROLAEMIA
     Dosage: 20 MG, UNK
     Dates: start: 20081201
  7. PIASCLEDINE [Concomitant]
     Indication: OSTEOARTHRITIS
     Dosage: 300 MG DAILY
     Route: 048
     Dates: start: 20050401

REACTIONS (1)
  - ARTERIAL DISORDER [None]
